FAERS Safety Report 13135719 (Version 1)
Quarter: 2017Q1

REPORT INFORMATION
  Report Type: Spontaneous
  Country: US (occurrence: US)
  Receive Date: 20170120
  Receipt Date: 20170120
  Transmission Date: 20170428
  Serious: Yes (Other)
  Sender: FDA-Public Use
  Company Number: US-ALLERGAN-1702210US

PATIENT
  Age: 66 Year
  Sex: Male

DRUGS (1)
  1. SUCRALFATE UNK [Suspect]
     Active Substance: SUCRALFATE
     Indication: ABDOMINAL DISCOMFORT
     Dosage: 10 ML, Q4HR
     Route: 048

REACTIONS (2)
  - Prostate cancer [Unknown]
  - Off label use [Unknown]
